FAERS Safety Report 4781825-X (Version None)
Quarter: 2005Q3

REPORT INFORMATION
  Report Type: 
  Country: None (occurrence: None)
  Receive Date: 20050927
  Receipt Date: 20050913
  Transmission Date: 20060218
  Serious: Yes (Other)
  Sender: FDA-Public Use
  Company Number: USA0506101416

PATIENT
  Age: 67 Year
  Sex: Female
  Weight: 107 kg

DRUGS (7)
  1. CYMBALTA [Suspect]
     Indication: NEUROPATHY
     Dosage: 30 MG DAY
     Dates: start: 20050603, end: 20050614
  2. ROCALTROL [Concomitant]
  3. DILTIAZEM [Concomitant]
  4. PENTA-TRIAMTERENE HCTZ [Concomitant]
  5. LEVOXYL [Concomitant]
  6. K-DUR 10 [Concomitant]
  7. ALLOPURINOL [Concomitant]

REACTIONS (1)
  - BLOOD CALCIUM DECREASED [None]
